FAERS Safety Report 12386851 (Version 1)
Quarter: 2016Q2

REPORT INFORMATION
  Report Type: Spontaneous
  Country: CN (occurrence: CN)
  Receive Date: 20160519
  Receipt Date: 20160519
  Transmission Date: 20160815
  Serious: Yes (Other)
  Sender: FDA-Public Use
  Company Number: CN-MYLANLABS-2016M1020393

PATIENT

DRUGS (21)
  1. EPIRUBICIN [Suspect]
     Active Substance: EPIRUBICIN
     Indication: DIFFUSE LARGE B-CELL LYMPHOMA STAGE II
     Dosage: 2 CYCLES OF 120 MG ON DAY 1, FOR EVERY 21 DAYS; AS A PART OF CHOP REGIMEN
     Route: 042
     Dates: start: 201105
  2. VINCRISTINE [Suspect]
     Active Substance: VINCRISTINE
     Dosage: 2 CYCLES OF 2 MG ON DAY 1, FOR EVERY 21 DAYS; AS A PART OF DOCPL REGIMEN
     Route: 042
     Dates: start: 201105
  3. ASPARAGINASE [Suspect]
     Active Substance: ASPARAGINASE
     Indication: DIFFUSE LARGE B-CELL LYMPHOMA STAGE II
     Dosage: 2 CYCLES OF 10000 U ON EVERY OTHER DAY X 5, FOR EVERY 21 DAYS; AS A PART OF DOCPL REGIMEN
     Route: 042
     Dates: start: 201105
  4. SODIUM CHLORIDE. [Concomitant]
     Active Substance: SODIUM CHLORIDE
     Dosage: 10 MG METHOTREXATE AND 5 MG DEXAMETHASONE IN 2 ML SALINE
     Route: 037
  5. EPIRUBICIN [Suspect]
     Active Substance: EPIRUBICIN
     Indication: BREAST CANCER STAGE II
     Dosage: AS AN INDEPENDANT THERAPY
     Route: 065
     Dates: start: 200709
  6. DEXAMETHASONE. [Suspect]
     Active Substance: DEXAMETHASONE
     Indication: LEUKAEMIA
     Dosage: 5 MG IN 2 ML SALINE
     Route: 037
     Dates: start: 201105
  7. CYTARABINE. [Suspect]
     Active Substance: CYTARABINE
     Indication: DIFFUSE LARGE B-CELL LYMPHOMA STAGE II
     Dosage: 200 MG FROM DAY 1 TO 7, FOR EVERY 21 DAYS; AS A PART OF CTOAP REGIMEN
     Route: 042
     Dates: start: 201105
  8. CYCLOPHOSPHAMIDE. [Suspect]
     Active Substance: CYCLOPHOSPHAMIDE
     Indication: DIFFUSE LARGE B-CELL LYMPHOMA STAGE II
     Dosage: 2 CYCLES OF 1100 MG ON DAY 1, FOR EVERY 21 DAYS; AS A PART OF CHOP REGIMEN
     Route: 042
     Dates: start: 201105
  9. CYCLOPHOSPHAMIDE. [Suspect]
     Active Substance: CYCLOPHOSPHAMIDE
     Indication: BREAST CANCER STAGE II
     Dosage: AS AN INDEPENDANT THERAPY
     Route: 065
     Dates: start: 200709
  10. CYCLOPHOSPHAMIDE. [Suspect]
     Active Substance: CYCLOPHOSPHAMIDE
     Dosage: 2 CYCLES OF 800 MG ON DAY 1, FOR EVERY 21 DAYS; AS A PART OF DOCPL REGIMEN
     Route: 042
     Dates: start: 201105
  11. CYCLOPHOSPHAMIDE. [Suspect]
     Active Substance: CYCLOPHOSPHAMIDE
     Dosage: 1000 MG ON DAY 1, FOR EVERY 21 DAYS; AS A PART OF CTOAP REGIMEN
     Route: 042
     Dates: start: 201105
  12. LETROZOLE. [Concomitant]
     Active Substance: LETROZOLE
     Dosage: 2.5 MG DAILY
     Route: 048
     Dates: start: 200709
  13. DOCETAXEL. [Suspect]
     Active Substance: DOCETAXEL
     Indication: BREAST CANCER STAGE II
     Dosage: REPEATED FOR 4 ROUNDS; AS AN INDEPENDANT THERAPY
     Route: 065
     Dates: start: 200709
  14. PREDNISONE. [Suspect]
     Active Substance: PREDNISONE
     Indication: DIFFUSE LARGE B-CELL LYMPHOMA STAGE II
     Dosage: 2 CYCLES ON DAY 1 TO 5, FOR EVERY 21 DAYS; AS A PART OF CHOP REGIMEN
     Route: 048
     Dates: start: 201105
  15. PIRARUBICIN [Suspect]
     Active Substance: PIRARUBICIN
     Indication: DIFFUSE LARGE B-CELL LYMPHOMA STAGE II
     Dosage: 2 CYCLES OF 30 MG FROM DAY 1 TO 3, FOR EVERY 21 DAYS; AS A PART OF DOCPL REGIMEN
     Route: 042
     Dates: start: 201105
  16. PIRARUBICIN [Suspect]
     Active Substance: PIRARUBICIN
     Dosage: 40 MG FROM DAY 1 TO 3, FOR EVERY 21 DAYS; AS A PART OF CTOAP REGIMEN
     Route: 042
     Dates: start: 201105
  17. VINCRISTINE [Suspect]
     Active Substance: VINCRISTINE
     Indication: DIFFUSE LARGE B-CELL LYMPHOMA STAGE II
     Dosage: 2 CYCLES OF 2 MG ON DAY 1, FOR EVERY 21 DAYS; AS A PART OF CHOP REGIMEN
     Route: 042
     Dates: start: 201105
  18. VINCRISTINE [Suspect]
     Active Substance: VINCRISTINE
     Dosage: 2 MG ON DAY 1 AND 8, FOR EVERY 21 DAYS; AS A PART OF CTOAP REGIMEN
     Route: 042
     Dates: start: 201105
  19. PREDNISONE. [Suspect]
     Active Substance: PREDNISONE
     Dosage: FROM DAY 1 TO 14, FOR EVERY 21 DAYS; AS A PART OF CTOAP REGIMEN
     Route: 048
     Dates: start: 201105
  20. METHOTREXATE [Suspect]
     Active Substance: METHOTREXATE
     Indication: LEUKAEMIA
     Dosage: 10 MG IN 2 ML SALINE
     Route: 037
     Dates: start: 201105
  21. PREDNISONE. [Suspect]
     Active Substance: PREDNISONE
     Dosage: 2 CYCLES FROM DAY 1 TO 5, FOR EVERY 21 DAYS; AS A PART OF DOCPL REGIMEN
     Route: 048
     Dates: start: 201105

REACTIONS (5)
  - Decreased appetite [Unknown]
  - Diffuse large B-cell lymphoma stage II [Unknown]
  - Fatigue [Unknown]
  - Lymphocytic leukaemia [Unknown]
  - Bone marrow failure [Unknown]
